FAERS Safety Report 17573366 (Version 1)
Quarter: 2020Q1

REPORT INFORMATION
  Report Type: Spontaneous
  Country: AT (occurrence: AT)
  Receive Date: 20200323
  Receipt Date: 20200323
  Transmission Date: 20200409
  Serious: Yes (Life-Threatening, Hospitalization)
  Sender: FDA-Public Use
  Company Number: AT-PFIZER INC-2020121899

PATIENT
  Age: 72 Year
  Sex: Male
  Weight: 60 kg

DRUGS (8)
  1. PANTOPRAZOL BLUEFISH [Concomitant]
     Dosage: 40 MG, 1X/DAY; 1 - 0 - 0 - 0
     Route: 048
  2. XELJANZ [Suspect]
     Active Substance: TOFACITINIB CITRATE
     Indication: RHEUMATOID ARTHRITIS
     Dosage: 10 MG, DAILY (1-0-1-0)
     Route: 048
     Dates: start: 20190225, end: 202002
  3. CALCIDURAN VIT. D3 [Concomitant]
     Active Substance: CALCIUM CARBONATE\CHOLECALCIFEROL
     Dosage: 1 DF, 1X/DAY; 0- 0 - 1 - 0
     Route: 048
  4. LASIX [Concomitant]
     Active Substance: FUROSEMIDE
     Dosage: 40 MG, 1X/DAY (1 - 0 - 0 - 0)
     Route: 048
  5. FOLSAN [Concomitant]
     Active Substance: FOLIC ACID
     Dosage: UNK; (1 - 0 - 0 - 0) 48H AND 72H AFTER EBETREXATGABE
     Route: 048
  6. EBETREXAT [METHOTREXATE] [Concomitant]
     Active Substance: METHOTREXATE
     Indication: RHEUMATOID ARTHRITIS
     Dosage: 2.5 MG, WEEKLY
     Route: 048
     Dates: start: 20191225, end: 202003
  7. LISINOSTAD [Concomitant]
     Active Substance: LISINOPRIL
     Dosage: 5 MG, 1X/DAY (1/2 - 0 - 0- 0)
     Route: 048
  8. LIXIANA [Concomitant]
     Active Substance: EDOXABAN TOSYLATE
     Dosage: 60 MG, 1X/DAY(1-0-0-0)
     Route: 048

REACTIONS (5)
  - Acute respiratory failure [Recovered/Resolved]
  - Pneumonia [Recovered/Resolved]
  - Asthenia [Unknown]
  - Pulmonary embolism [Recovered/Resolved]
  - Pyrexia [Recovered/Resolved]

NARRATIVE: CASE EVENT DATE: 20191201
